FAERS Safety Report 12138100 (Version 1)
Quarter: 2016Q1

REPORT INFORMATION
  Report Type: Spontaneous
  Country: GB (occurrence: GB)
  Receive Date: 20160302
  Receipt Date: 20160302
  Transmission Date: 20160526
  Serious: Yes (Life-Threatening)
  Sender: FDA-Public Use
  Company Number: GB-WATSON-2016-03713

PATIENT
  Age: 94 Year
  Sex: Male

DRUGS (2)
  1. LEVOTHYROXINE. [Concomitant]
     Active Substance: LEVOTHYROXINE
     Indication: PRODUCT USED FOR UNKNOWN INDICATION
     Dosage: UNK
     Route: 065
  2. DOXYCYCLINE (UNKNOWN) [Suspect]
     Active Substance: DOXYCYCLINE
     Indication: EYE INFECTION BACTERIAL
     Dosage: 1 DF, DAILY
     Route: 048
     Dates: start: 20160120, end: 20160206

REACTIONS (1)
  - Suicide attempt [Not Recovered/Not Resolved]

NARRATIVE: CASE EVENT DATE: 20160207
